FAERS Safety Report 17936395 (Version 1)
Quarter: 2020Q2

REPORT INFORMATION
  Report Type: Spontaneous
  Country: US (occurrence: US)
  Receive Date: 20200624
  Receipt Date: 20200624
  Transmission Date: 20200714
  Serious: Yes (Hospitalization, Other)
  Sender: FDA-Public Use
  Company Number: US-NOVOPROD-734914

PATIENT
  Sex: Female

DRUGS (2)
  1. NOVOLIN R [Suspect]
     Active Substance: INSULIN HUMAN
     Indication: TYPE 2 DIABETES MELLITUS
     Dosage: SLIDING SCALE INJECTS WITH EVERY MEAL AND SNACK OVER 1 CARB.
     Route: 058
     Dates: start: 201810
  2. NOVOLIN N [Suspect]
     Active Substance: INSULIN HUMAN
     Indication: TYPE 2 DIABETES MELLITUS
     Dosage: 68 IU, QD (32 UNITS INJECTED AFTER BREAKFAST AND 36 UNITS AFTER DINNER.)
     Route: 058
     Dates: start: 201810

REACTIONS (7)
  - Product complaint [Unknown]
  - Hip arthroplasty [Recovered/Resolved]
  - Weight increased [Not Recovered/Not Resolved]
  - Blood glucose fluctuation [Not Recovered/Not Resolved]
  - Cataract operation [Recovering/Resolving]
  - Retinal operation [Recovering/Resolving]
  - Limb injury [Unknown]

NARRATIVE: CASE EVENT DATE: 201810
